FAERS Safety Report 22356405 (Version 1)
Quarter: 2023Q2

REPORT INFORMATION
  Report Type: Spontaneous
  Country: US (occurrence: None)
  Receive Date: 20230523
  Receipt Date: 20230523
  Transmission Date: 20230722
  Serious: Yes (Other)
  Sender: FDA-Public Use
  Company Number: None

PATIENT
  Age: 6 Year
  Sex: Male
  Weight: 47 kg

DRUGS (1)
  1. SINGULAIR [Suspect]
     Active Substance: MONTELUKAST SODIUM
     Dosage: QD PO??FOOD/MEDICAL FOOD?
     Route: 048
     Dates: start: 202110, end: 202206

REACTIONS (3)
  - Mood altered [None]
  - Aggression [None]
  - Irritability [None]
